FAERS Safety Report 16230021 (Version 1)
Quarter: 2019Q2

REPORT INFORMATION
  Report Type: Spontaneous
  Country: US (occurrence: US)
  Receive Date: 20190423
  Receipt Date: 20190423
  Transmission Date: 20190711
  Serious: Yes (Other)
  Sender: FDA-Public Use
  Company Number: US-THERAPEUTICSMD-2019TMD00654

PATIENT
  Age: 55 Year
  Sex: Female

DRUGS (1)
  1. IMVEXXY [Suspect]
     Active Substance: ESTRADIOL
     Indication: DYSPAREUNIA
     Dosage: UNK
     Dates: start: 201903

REACTIONS (3)
  - Abdominal pain upper [Unknown]
  - Urinary tract infection [Unknown]
  - Vomiting [Unknown]

NARRATIVE: CASE EVENT DATE: 20190406
